FAERS Safety Report 12518894 (Version 1)
Quarter: 2016Q2

REPORT INFORMATION
  Report Type: Other
  Country: DE (occurrence: DE)
  Receive Date: 20160630
  Receipt Date: 20160630
  Transmission Date: 20160815
  Serious: No
  Sender: FDA-Public Use
  Company Number: DE-LUPIN PHARMACEUTICALS INC.-E2B_00003859

PATIENT
  Sex: Male
  Weight: 79 kg

DRUGS (1)
  1. SIMVASTATIN. [Suspect]
     Active Substance: SIMVASTATIN
     Indication: HYPERCHYLOMICRONAEMIA
     Route: 048
     Dates: start: 20150126, end: 20150619

REACTIONS (1)
  - Myalgia [Recovering/Resolving]
